FAERS Safety Report 6895214-5 (Version None)
Quarter: 2010Q3

REPORT INFORMATION
  Report Type: 
  Country: None (occurrence: None)
  Receive Date: 20100802
  Receipt Date: 20100722
  Transmission Date: 20110219
  Serious: Yes (Hospitalization)
  Sender: FDA-Public Use
  Company Number: PHHO2010RU06242

PATIENT
  Sex: Male
  Weight: 88.5 kg

DRUGS (4)
  1. STI571/CGP57148B T35717+TAB [Suspect]
     Indication: CHRONIC MYELOID LEUKAEMIA
     Dosage: 600 MG, UNK
     Route: 048
     Dates: start: 20100212, end: 20100701
  2. BETALOC [Concomitant]
  3. ENALAPRIL [Concomitant]
  4. ASPIRIN [Concomitant]

REACTIONS (2)
  - ECZEMA [None]
  - RASH [None]
